FAERS Safety Report 18501903 (Version 2)
Quarter: 2020Q4

REPORT INFORMATION
  Report Type: Spontaneous
  Country: US (occurrence: US)
  Receive Date: 20201113
  Receipt Date: 20201223
  Transmission Date: 20210114
  Serious: No
  Sender: FDA-Public Use
  Company Number: US-ASTRAZENECA-2020SF37461

PATIENT
  Age: 55 Year
  Sex: Female
  Weight: 67.1 kg

DRUGS (3)
  1. PULMICORT FLEXHALER [Suspect]
     Active Substance: BUDESONIDE
     Indication: ASTHMA
     Route: 055
     Dates: start: 20201013
  2. XARELTO [Concomitant]
     Active Substance: RIVAROXABAN
     Indication: DRUG THERAPY
     Route: 055
  3. PROAIR HFA [Concomitant]
     Active Substance: ALBUTEROL SULFATE
     Indication: DRUG THERAPY
     Dosage: AS REQUIRED
     Route: 055

REACTIONS (4)
  - Poor quality device used [Unknown]
  - Atrial fibrillation [Unknown]
  - Product taste abnormal [Unknown]
  - Device failure [Unknown]

NARRATIVE: CASE EVENT DATE: 2017
